FAERS Safety Report 4996393-7 (Version None)
Quarter: 2006Q2

REPORT INFORMATION
  Report Type: 
  Country: None (occurrence: None)
  Receive Date: 20060509
  Receipt Date: 20060502
  Transmission Date: 20061013
  Serious: Yes (Death)
  Sender: FDA-Public Use
  Company Number: US-JNJFOC-20060500770

PATIENT
  Sex: Female

DRUGS (2)
  1. ACETAMINOPHEN [Suspect]
  2. ACETAMINOPHEN [Suspect]
     Indication: BACK PAIN
     Dosage: MORE THAN RECOMMENDED DOSE, EXACT DOSE UNKNOWN

REACTIONS (2)
  - HEPATIC FAILURE [None]
  - OVERDOSE [None]
